FAERS Safety Report 6718481-7 (Version None)
Quarter: 2010Q2

REPORT INFORMATION
  Report Type: 
  Country: None (occurrence: None)
  Receive Date: 20100510
  Receipt Date: 20100429
  Transmission Date: 20101027
  Serious: Yes (Other)
  Sender: FDA-Public Use
  Company Number: US-PFIZER INC-2010052628

PATIENT
  Sex: Female
  Weight: 72 kg

DRUGS (7)
  1. CHANTIX [Suspect]
     Indication: SMOKING CESSATION THERAPY
     Dosage: 0.5 MG, 1X/DAY
     Route: 048
     Dates: start: 20100301
  2. CHANTIX [Suspect]
     Dosage: 1 MG, 2X/DAY
     Route: 048
     Dates: start: 20100101
  3. METFORMIN [Concomitant]
     Indication: DIABETES MELLITUS
     Dosage: 500 MG, 2X/DAY
  4. EFFEXOR XR [Concomitant]
     Dosage: 150 MG, 2X/DAY
  5. GABAPENTIN [Concomitant]
     Dosage: UNK
  6. BUMEX [Concomitant]
     Dosage: 1 MG, 2X/DAY
  7. POTASSIUM [Concomitant]
     Dosage: UNK

REACTIONS (1)
  - DYSKINESIA [None]
